FAERS Safety Report 6700093-2 (Version None)
Quarter: 2010Q2

REPORT INFORMATION
  Report Type: 
  Country: None (occurrence: None)
  Receive Date: 20100428
  Receipt Date: 20100419
  Transmission Date: 20101027
  Serious: Yes (Hospitalization, Other)
  Sender: FDA-Public Use
  Company Number: US-ABBOTT-10P-163-0640045-00

PATIENT
  Sex: Female
  Weight: 77.18 kg

DRUGS (15)
  1. NIASPAN [Suspect]
     Indication: BLOOD TRIGLYCERIDES INCREASED
     Route: 048
     Dates: end: 20100310
  2. NIASPAN [Suspect]
     Dates: start: 20100311, end: 20100401
  3. METFORMIN [Concomitant]
     Indication: DIABETES MELLITUS
  4. VYTORIN [Concomitant]
     Indication: BLOOD CHOLESTEROL INCREASED
  5. TRAZODONE HCL [Concomitant]
     Indication: INSOMNIA
  6. FLEXERIL [Concomitant]
     Indication: BACK PAIN
  7. DARVOCET [Concomitant]
     Indication: BACK PAIN
  8. ACIPHEX [Concomitant]
     Indication: GASTROOESOPHAGEAL REFLUX DISEASE
  9. ACIPHEX [Concomitant]
     Indication: GASTRITIS
  10. ADVAIR DISKUS 100/50 [Concomitant]
     Indication: BRONCHITIS CHRONIC
  11. ASPIRIN [Concomitant]
     Indication: PROPHYLAXIS
  12. PLAVIX [Concomitant]
     Indication: DRUG USE FOR UNKNOWN INDICATION
  13. ATENOLOL [Concomitant]
     Indication: HYPERTENSION
  14. XANAX [Concomitant]
     Indication: INSOMNIA
  15. CALCIUM SUPPLEMENT [Concomitant]
     Indication: MINERAL SUPPLEMENTATION

REACTIONS (5)
  - CHEMICAL POISONING [None]
  - CHEST PAIN [None]
  - HEPATIC ENZYME INCREASED [None]
  - HEPATIC STEATOSIS [None]
  - SINUS TACHYCARDIA [None]
